FAERS Safety Report 14045734 (Version 1)
Quarter: 2017Q4

REPORT INFORMATION
  Report Type: Other
  Country: CZ (occurrence: CZ)
  Receive Date: 20171005
  Receipt Date: 20171005
  Transmission Date: 20180321
  Serious: Yes (Life-Threatening, Hospitalization, Other)
  Sender: FDA-Public Use
  Company Number: CZ-APOTEX-2017AP019103

PATIENT
  Age: 21 Year
  Sex: Male

DRUGS (3)
  1. APO-IBUPROFEN [Suspect]
     Active Substance: IBUPROFEN
     Indication: PRODUCT USED FOR UNKNOWN INDICATION
     Dosage: 400 MG, 40 TABLETS
     Route: 065
     Dates: start: 20170716
  2. SERTRALIN APOTEX POTAHOVAN? TABLETY [Suspect]
     Active Substance: SERTRALINE HYDROCHLORIDE
     Indication: PRODUCT USED FOR UNKNOWN INDICATION
     Dosage: 30 TABLETS TOTAL
     Route: 065
     Dates: start: 20170716
  3. STOPEX [Suspect]
     Active Substance: DEXTROMETHORPHAN HYDROBROMIDE
     Indication: PRODUCT USED FOR UNKNOWN INDICATION
     Dosage: 30 TABLETS TOTAL
     Route: 065
     Dates: start: 20170716

REACTIONS (6)
  - Suicide attempt [Unknown]
  - Somnolence [Unknown]
  - Dysarthria [Unknown]
  - Intentional product misuse [Unknown]
  - Overdose [Unknown]
  - Intentional overdose [Unknown]

NARRATIVE: CASE EVENT DATE: 20170716
